FAERS Safety Report 7352949-8 (Version None)
Quarter: 2011Q1

REPORT INFORMATION
  Report Type: 
  Country: None (occurrence: None)
  Receive Date: 20110315
  Receipt Date: 20110309
  Transmission Date: 20110831
  Serious: Yes (Disabling, Other)
  Sender: FDA-Public Use
  Company Number: JP-ROCHE-765080

PATIENT
  Sex: Female

DRUGS (3)
  1. TAMIFLU [Suspect]
     Indication: INFLUENZA
     Route: 048
     Dates: start: 20110102, end: 20110102
  2. COCARL [Concomitant]
     Dosage: NOTE: ONCE
     Route: 048
     Dates: start: 20110102, end: 20110107
  3. TAMIFLU [Suspect]
     Route: 048
     Dates: start: 20110103, end: 20110106

REACTIONS (2)
  - PULMONARY FIBROSIS [None]
  - PNEUMONIA [None]
